FAERS Safety Report 5612658-X (Version None)
Quarter: 2008Q1

REPORT INFORMATION
  Report Type: 
  Country: None (occurrence: None)
  Receive Date: 20080204
  Receipt Date: 20080123
  Transmission Date: 20080703
  Serious: Yes (Hospitalization)
  Sender: FDA-Public Use
  Company Number: CH-WYE-G00895808

PATIENT
  Age: 24 Year
  Sex: Female

DRUGS (10)
  1. EFFEXOR [Suspect]
     Indication: DEPRESSION
     Route: 048
     Dates: start: 20051201, end: 20070917
  2. EFFEXOR [Suspect]
     Route: 048
     Dates: start: 20070918, end: 20070921
  3. EFFEXOR [Suspect]
     Route: 048
     Dates: start: 20070922, end: 20070923
  4. EFFEXOR [Suspect]
     Route: 048
     Dates: start: 20070924, end: 20070924
  5. EFFEXOR [Suspect]
     Route: 048
     Dates: start: 20070925, end: 20071029
  6. EFFEXOR [Suspect]
     Route: 048
     Dates: start: 20071030, end: 20071108
  7. EFFEXOR [Suspect]
     Route: 048
     Dates: start: 20071109
  8. EFFEXOR [Suspect]
     Dosage: UNSPECIFIED
     Dates: end: 20051201
  9. CHLORAL HYDRATE [Concomitant]
     Route: 048
     Dates: start: 20070605, end: 20071001
  10. CHLORAL HYDRATE [Concomitant]
     Route: 048
     Dates: start: 20071002, end: 20071015

REACTIONS (5)
  - AFFECT LABILITY [None]
  - DRUG EFFECT DECREASED [None]
  - FUMBLING [None]
  - MUSCULAR WEAKNESS [None]
  - SEROTONIN SYNDROME [None]
